FAERS Safety Report 7608369-1 (Version None)
Quarter: 2011Q3

REPORT INFORMATION
  Report Type: 
  Country: None (occurrence: None)
  Receive Date: 20110714
  Receipt Date: 20110705
  Transmission Date: 20111222
  Serious: Yes (Hospitalization)
  Sender: FDA-Public Use
  Company Number: US-EISAI INC-E7272-00104-CLI-US

PATIENT
  Sex: Male

DRUGS (18)
  1. ACETAMINOPHEN [Concomitant]
     Indication: PREMEDICATION
     Route: 048
     Dates: start: 20110329
  2. DILTIAZEM [Concomitant]
     Indication: HYPERTENSION
     Route: 048
     Dates: start: 20090401
  3. CLOBETASOL PROPIONATE [Concomitant]
     Indication: ECZEMA
     Route: 061
     Dates: start: 20090101
  4. SODIUM CHLORIDE [Concomitant]
     Route: 042
     Dates: start: 20110510
  5. OSTEO BI-FLEX [Concomitant]
     Indication: OSTEOARTHRITIS
     Route: 048
     Dates: start: 20080101
  6. LORATADINE [Concomitant]
     Indication: PREMEDICATION
     Route: 048
     Dates: start: 20110329
  7. FUROSEMIDE [Concomitant]
  8. MULTI-VITAMINS [Concomitant]
     Indication: VITAMIN SUPPLEMENTATION
     Route: 048
     Dates: start: 20010101
  9. DILTIAZEM [Concomitant]
     Indication: CARDIAC DISORDER
  10. DOCUSATE SODIUM [Concomitant]
     Indication: CONSTIPATION
     Route: 048
     Dates: start: 20101201
  11. CYCLOBENAZPRINE [Concomitant]
     Route: 048
     Dates: start: 20100401, end: 20110621
  12. POTASSIUM [Concomitant]
     Indication: HYPOKALAEMIA
     Route: 048
     Dates: start: 20090401
  13. ONTAK [Suspect]
     Route: 041
     Dates: start: 20110329
  14. METOPROLOL [Concomitant]
     Indication: HYPERTENSION
     Route: 048
     Dates: start: 19960101
  15. SODIUM CHLORIDE [Concomitant]
  16. COUMADIN [Concomitant]
     Indication: ANTICOAGULANT THERAPY
     Route: 048
     Dates: start: 20090401
  17. FUROSEMIDE [Concomitant]
     Indication: HYPERTENSION
     Route: 048
     Dates: start: 20090401
  18. MULTI-VITAMINS [Concomitant]
     Indication: FATIGUE

REACTIONS (2)
  - CELLULITIS [None]
  - MENTAL STATUS CHANGES [None]
